FAERS Safety Report 20468034 (Version 1)
Quarter: 2022Q1

REPORT INFORMATION
  Report Type: Spontaneous
  Country: CH (occurrence: CH)
  Receive Date: 20220214
  Receipt Date: 20220214
  Transmission Date: 20220424
  Serious: Yes (Congenital Anomaly, Other)
  Sender: FDA-Public Use
  Company Number: CH-ALKEM LABORATORIES LIMITED-CH-ALKEM-2021-03835

PATIENT
  Age: 28 Year
  Sex: Female

DRUGS (5)
  1. ASPIRIN [Suspect]
     Active Substance: ASPIRIN
     Indication: Coronary artery bypass
     Dosage: 100 MILLIGRAM
     Route: 065
  2. CLOPIDOGREL [Suspect]
     Active Substance: CLOPIDOGREL BISULFATE
     Indication: Coronary artery bypass
     Dosage: 75 MILLIGRAM
     Route: 065
  3. ROSUVASTATIN [Suspect]
     Active Substance: ROSUVASTATIN
     Indication: Coronary artery bypass
     Dosage: 20 MILLIGRAM
     Route: 065
  4. EZETIMIBE [Suspect]
     Active Substance: EZETIMIBE
     Indication: Coronary artery bypass
     Dosage: 10 MILLIGRAM, OD
     Route: 065
  5. ALIROCUMAB [Suspect]
     Active Substance: ALIROCUMAB
     Indication: Coronary artery bypass
     Dosage: EVERY 2 WEEKS
     Route: 058

REACTIONS (1)
  - Exposure during pregnancy [Unknown]
